FAERS Safety Report 6956943-8 (Version None)
Quarter: 2010Q3

REPORT INFORMATION
  Report Type: 
  Country: None (occurrence: None)
  Receive Date: 20100826
  Receipt Date: 20100823
  Transmission Date: 20110219
  Serious: Yes (Hospitalization)
  Sender: FDA-Public Use
  Company Number: KV200800326

PATIENT
  Age: 74 Year
  Sex: Female
  Weight: 63.5 kg

DRUGS (3)
  1. MORPHINE SULFATE [Suspect]
     Indication: BACK PAIN
     Dosage: 15 MG, ONE TAB EVERY 4 HOURS, ORAL, ORAL
     Route: 048
     Dates: start: 20080831, end: 20080901
  2. MORPHINE SULFATE [Suspect]
     Indication: BACK PAIN
     Dosage: 15 MG, ONE TAB EVERY 4 HOURS, ORAL, ORAL
     Route: 048
     Dates: start: 20080901, end: 20081001
  3. UNKNOWN MEDICATIONS [Concomitant]

REACTIONS (10)
  - COLD SWEAT [None]
  - DISORIENTATION [None]
  - HYPERHIDROSIS [None]
  - HYPERTENSION [None]
  - INSOMNIA [None]
  - MALAISE [None]
  - NAUSEA [None]
  - PALLOR [None]
  - SURGERY [None]
  - VOMITING [None]
